FAERS Safety Report 7380330-4 (Version None)
Quarter: 2011Q1

REPORT INFORMATION
  Report Type: 
  Country: None (occurrence: None)
  Receive Date: 20110318
  Receipt Date: 20110304
  Transmission Date: 20110831
  Serious: Yes (Hospitalization)
  Sender: FDA-Public Use
  Company Number: CIP11000598

PATIENT
  Age: 75 Year
  Sex: Female

DRUGS (9)
  1. SYSTEM /00045401/ (ESTRADIOL) [Concomitant]
  2. FOSAMAX [Suspect]
     Indication: OSTEOPOROSIS
     Dosage: 70 MG ONCE WEEKLY, ORAL
     Route: 048
     Dates: start: 20000101, end: 20040101
  3. FOSAMAX [Suspect]
     Indication: PATHOLOGICAL FRACTURE
     Dosage: 70 MG ONCE WEEKLY, ORAL
     Route: 048
     Dates: start: 20000101, end: 20040101
  4. BONIVA [Suspect]
     Indication: OSTEOPOROSIS
     Dosage: 150 MG ONCE MONTHLY, ORAL
     Route: 048
     Dates: start: 20070101, end: 20101115
  5. BONIVA [Suspect]
     Indication: PATHOLOGICAL FRACTURE
     Dosage: 150 MG ONCE MONTHLY, ORAL
     Route: 048
     Dates: start: 20070101, end: 20101115
  6. SORTIS /01326101/ (ATORVASTATIN) [Concomitant]
  7. SYMFONA N (GINKGO BILOBA EXTRACT) [Concomitant]
  8. ACTONEL [Suspect]
     Indication: OSTEOPOROSIS
     Dosage: 35 MG ONCE WEEKLY, ORAL
     Route: 048
     Dates: start: 20040101, end: 20070101
  9. ACTONEL [Suspect]
     Indication: PATHOLOGICAL FRACTURE
     Dosage: 35 MG ONCE WEEKLY, ORAL
     Route: 048
     Dates: start: 20040101, end: 20070101

REACTIONS (3)
  - FALL [None]
  - FEMUR FRACTURE [None]
  - BONE PAIN [None]
